FAERS Safety Report 4447307-X (Version None)
Quarter: 2004Q3

REPORT INFORMATION
  Report Type: 
  Country: None (occurrence: None)
  Receive Date: 20040813
  Receipt Date: 20040501
  Transmission Date: 20050211
  Serious: No
  Sender: FDA-Public Use
  Company Number: S04-USA-00973-01

PATIENT
  Age: 89 Year
  Sex: Female

DRUGS (9)
  1. NAMENDA [Suspect]
     Indication: DEMENTIA ALZHEIMER'S TYPE
     Dosage: 5 MG QD PO
     Route: 048
     Dates: start: 20040220, end: 20040222
  2. NAMENDA [Suspect]
     Indication: DEMENTIA ALZHEIMER'S TYPE
     Dosage: 2.5 MG QD PO
     Route: 048
  3. NAMENDA [Suspect]
     Indication: DEMENTIA ALZHEIMER'S TYPE
     Dosage: 5 MG QD PO
     Route: 048
  4. ARICEPT [Concomitant]
  5. SYNTHROID [Concomitant]
  6. COREG [Concomitant]
  7. LASIX [Concomitant]
  8. FLAGYL [Concomitant]
  9. POTASSIUM [Concomitant]

REACTIONS (1)
  - SOMNOLENCE [None]
